FAERS Safety Report 21247257 (Version 1)
Quarter: 2022Q3

REPORT INFORMATION
  Report Type: Spontaneous
  Country: AT (occurrence: AT)
  Receive Date: 20220824
  Receipt Date: 20220824
  Transmission Date: 20221027
  Serious: Yes (Other)
  Sender: FDA-Public Use
  Company Number: AT-BRISTOL-MYERS SQUIBB COMPANY-BMS-2021-029604

PATIENT
  Age: 46 Year
  Sex: Male
  Weight: 67 kg

DRUGS (2)
  1. YERVOY [Suspect]
     Active Substance: IPILIMUMAB
     Indication: Metastatic malignant melanoma
     Dosage: DEC-2020- 3 CYCLES (IN COMBINATION WITH OPDIVO)
     Route: 042
  2. OPDIVO [Suspect]
     Active Substance: NIVOLUMAB
     Indication: Metastatic malignant melanoma
     Dosage: DEC-2020 - 3 CYCLES, 4 CYCLES UNTIL DEC-2021, ?APR-2022 AND MAY-2022 -2 CYCLES
     Route: 042

REACTIONS (6)
  - Uveitis [Unknown]
  - Immune-mediated arthritis [Unknown]
  - Metastases to central nervous system [Unknown]
  - Immune-mediated hepatitis [Recovered/Resolved]
  - Vitiligo [Unknown]
  - Epilepsy [Unknown]

NARRATIVE: CASE EVENT DATE: 20210401
